FAERS Safety Report 5910626-1 (Version None)
Quarter: 2008Q4

REPORT INFORMATION
  Report Type: 
  Country: None (occurrence: None)
  Receive Date: 20081007
  Receipt Date: 20081002
  Transmission Date: 20090506
  Serious: Yes (Other)
  Sender: FDA-Public Use
  Company Number: JP-JNJFOC-20080906033

PATIENT

DRUGS (3)
  1. KETOCONAZOLE [Suspect]
     Indication: DRUG USE FOR UNKNOWN INDICATION
     Route: 003
  2. ZYLORIC [Concomitant]
     Route: 048
  3. PROHEPARUM [Concomitant]
     Route: 048

REACTIONS (4)
  - ABDOMINAL PAIN [None]
  - ARRHYTHMIA [None]
  - DIARRHOEA [None]
  - PALPITATIONS [None]
